FAERS Safety Report 21370050 (Version 3)
Quarter: 2022Q4

REPORT INFORMATION
  Report Type: Spontaneous
  Country: US (occurrence: US)
  Receive Date: 20220923
  Receipt Date: 20221018
  Transmission Date: 20230113
  Serious: Yes (Hospitalization, Other)
  Sender: FDA-Public Use
  Company Number: US-PFIZER INC-202201179778

PATIENT
  Age: 90 Year
  Sex: Female

DRUGS (3)
  1. RETACRIT [Suspect]
     Active Substance: EPOETIN ALFA-EPBX
     Indication: Myelofibrosis
     Dosage: 40 MG, WEEKLY (INJECTION EVERY FRIDAY)
     Dates: start: 202206
  2. RETACRIT [Suspect]
     Active Substance: EPOETIN ALFA-EPBX
     Dosage: 60 MG, WEEKLY (INJECTION EVERY FRIDAY)
     Dates: start: 202206
  3. JAKAFI [Concomitant]
     Active Substance: RUXOLITINIB
     Dosage: 10 MG (10 MG 1/2 IN THE MORNING AND 1/2 AT NIGHT)
     Dates: start: 202207

REACTIONS (9)
  - Dizziness [Not Recovered/Not Resolved]
  - Insomnia [Not Recovered/Not Resolved]
  - Product prescribing issue [Not Recovered/Not Resolved]
  - Near death experience [Not Recovered/Not Resolved]
  - Asthenia [Not Recovered/Not Resolved]
  - Illness [Not Recovered/Not Resolved]
  - Muscular weakness [Not Recovered/Not Resolved]
  - Gait disturbance [Not Recovered/Not Resolved]
  - Dysstasia [Unknown]

NARRATIVE: CASE EVENT DATE: 20220601
